FAERS Safety Report 23114766 (Version 1)
Quarter: 2023Q4

REPORT INFORMATION
  Report Type: Spontaneous
  Country: US (occurrence: None)
  Receive Date: 20231026
  Receipt Date: 20231026
  Transmission Date: 20240109
  Serious: Yes (Disabling)
  Sender: FDA-Public Use
  Company Number: None

PATIENT
  Age: 68 Year
  Sex: Female
  Weight: 49.5 kg

DRUGS (1)
  1. TYMLOS [Suspect]
     Active Substance: ABALOPARATIDE
     Indication: Osteoporosis
     Dosage: OTHER QUANTITY : 1 INJECTION(S);?FREQUENCY : AT BEDTIME;?
     Route: 058
     Dates: start: 20230818

REACTIONS (3)
  - Dizziness [None]
  - Vertigo [None]
  - Heart rate increased [None]

NARRATIVE: CASE EVENT DATE: 20231001
